FAERS Safety Report 9004996 (Version 3)
Quarter: 2013Q1

REPORT INFORMATION
  Report Type: Spontaneous
  Country: IT (occurrence: IT)
  Receive Date: 20130109
  Receipt Date: 20130218
  Transmission Date: 20140127
  Serious: Yes (Hospitalization)
  Sender: FDA-Public Use
  Company Number: IT-BAYER-2013-000390

PATIENT
  Age: 81 Year
  Sex: Male

DRUGS (3)
  1. NEXAVAR [Suspect]
     Indication: HEPATIC CANCER
     Dosage: 400 MG, BID
     Route: 048
     Dates: start: 20120206, end: 20120216
  2. HEPARIN [Concomitant]
     Dosage: DAILY DOSE 0.6 ML
     Route: 058
  3. LACIDIPINE [Concomitant]
     Indication: HYPERTENSION
     Dosage: DAILY DOSE 4 MG

REACTIONS (1)
  - Cerebrovascular accident [Recovered/Resolved with Sequelae]
